FAERS Safety Report 5816059-0 (Version None)
Quarter: 2008Q3

REPORT INFORMATION
  Report Type: 
  Country: None (occurrence: None)
  Receive Date: 20080721
  Receipt Date: 20080707
  Transmission Date: 20090109
  Serious: Yes (Other)
  Sender: FDA-Public Use
  Company Number: US-BAYER-200812769BCC

PATIENT
  Age: 59 Year
  Sex: Female
  Weight: 59 kg

DRUGS (1)
  1. ALKA SELTZER PLUS NIGHT TIME LIQUID GELS [Suspect]
     Indication: NASOPHARYNGITIS
     Dosage: TOTAL DAILY DOSE: 2 DF  UNIT DOSE: 1 DF
     Route: 048
     Dates: start: 20080628

REACTIONS (12)
  - CONFUSIONAL STATE [None]
  - DRY SKIN [None]
  - EYE PRURITUS [None]
  - EYE SWELLING [None]
  - HYPERSENSITIVITY [None]
  - HYPOAESTHESIA [None]
  - OEDEMA PERIPHERAL [None]
  - PRURITUS [None]
  - RASH [None]
  - SKIN DISCOLOURATION [None]
  - SKIN EXFOLIATION [None]
  - SWELLING FACE [None]
